FAERS Safety Report 4392023-6 (Version None)
Quarter: 2004Q3

REPORT INFORMATION
  Report Type: 
  Country: None (occurrence: None)
  Receive Date: 20040708
  Receipt Date: 20040607
  Transmission Date: 20050211
  Serious: Yes (Other)
  Sender: FDA-Public Use
  Company Number: PHBS2004JP07513

PATIENT
  Age: 31 Year
  Sex: Female

DRUGS (5)
  1. IMATINIB [Suspect]
     Indication: BLAST CRISIS IN MYELOGENOUS LEUKAEMIA
     Dosage: 400 MG/D
     Route: 065
     Dates: start: 20020101, end: 20020601
  2. IMATINIB [Suspect]
     Dosage: 600 MG/D
     Route: 065
     Dates: start: 20020101
  3. VINCRISTINE [Concomitant]
  4. PREDNISOLONE [Concomitant]
  5. CYCLOSPORINE [Suspect]
     Indication: PROPHYLAXIS AGAINST TRANSPLANT REJECTION
     Dosage: 6MG/KG
     Dates: start: 20020601

REACTIONS (5)
  - FACE OEDEMA [None]
  - MACULAR OEDEMA [None]
  - OEDEMA PERIPHERAL [None]
  - VISION BLURRED [None]
  - VISUAL ACUITY REDUCED [None]
